FAERS Safety Report 9230425 (Version 1)
Quarter: 2013Q1

REPORT INFORMATION
  Report Type: Spontaneous
  Country: US (occurrence: None)
  Receive Date: 20121019
  Receipt Date: 20121019
  Transmission Date: 20140127
  Serious: No
  Sender: FDA-Public Use
  Company Number: 2012P1011405

PATIENT
  Sex: Female

DRUGS (1)
  1. FENTANYL [Suspect]
     Indication: PROCEDURAL PAIN
     Dates: end: 201201

REACTIONS (6)
  - Hot flush [None]
  - Asthma [None]
  - Hypersensitivity [None]
  - Cough [None]
  - Vomiting [None]
  - Drug withdrawal syndrome [None]
